FAERS Safety Report 6137601-9 (Version None)
Quarter: 2009Q1

REPORT INFORMATION
  Report Type: 
  Country: None (occurrence: None)
  Receive Date: 20090327
  Receipt Date: 20090327
  Transmission Date: 20090719
  Serious: Yes (Life-Threatening, Hospitalization)
  Sender: FDA-Public Use
  Company Number: None

PATIENT
  Age: 57 Year
  Sex: Male
  Weight: 117.9352 kg

DRUGS (1)
  1. VYTORIN [Suspect]
     Indication: CARDIAC DISORDER
     Dosage: ONE PER DAY
     Dates: start: 20070701

REACTIONS (4)
  - ANOREXIA [None]
  - ASTHENIA [None]
  - FATIGUE [None]
  - RHABDOMYOLYSIS [None]
